FAERS Safety Report 9817199 (Version 4)
Quarter: 2014Q2

REPORT INFORMATION
  Report Type: Spontaneous
  Country: GB (occurrence: GB)
  Receive Date: 20140114
  Receipt Date: 20140407
  Transmission Date: 20141212
  Serious: Yes (Other)
  Sender: FDA-Public Use
  Company Number: GB-009507513-1401GBR002958

PATIENT
  Age: 32 Year
  Sex: Female

DRUGS (2)
  1. IMPLANON [Suspect]
     Indication: CONTRACEPTION
     Dosage: HAD THE IMPLANT FOR NEARLY 3 YEARS
     Route: 059
     Dates: start: 20080925, end: 2011
  2. CITALOPRAM [Concomitant]
     Indication: DEPRESSION
     Dosage: 40, DAILY
     Route: 048
     Dates: start: 2011

REACTIONS (2)
  - Abortion spontaneous [Unknown]
  - Unintended pregnancy [Recovered/Resolved]
